FAERS Safety Report 10221389 (Version 2)
Quarter: 2014Q2

REPORT INFORMATION
  Report Type: Report from Study
  Country: US (occurrence: US)
  Receive Date: 20140606
  Receipt Date: 20140618
  Transmission Date: 20141212
  Serious: Yes (Other)
  Sender: FDA-Public Use
  Company Number: US-UCBSA-122986

PATIENT
  Age: 63 Year
  Sex: Female
  Weight: 72.2 kg

DRUGS (8)
  1. BLINDED CERTOLIZUMAB PEGOL RA [Suspect]
     Indication: RHEUMATOID ARTHRITIS
     Dosage: DOSE: 1 INJECTION EVERY TWO WEEKS
     Route: 058
     Dates: start: 20130417, end: 20140402
  2. BLINDED PLACEBO [Suspect]
     Indication: RHEUMATOID ARTHRITIS
     Dosage: DOSE: 1 INJECTION EVERY TWO WEEKS
     Route: 058
     Dates: start: 20130417, end: 20140402
  3. VERAPAMIL [Concomitant]
     Indication: HYPERTENSION
     Dosage: 240 MG, ONCE DAILY (QD)
     Dates: start: 2005
  4. DIOVAN [Concomitant]
     Indication: HYPERTENSION
     Dosage: 320 MG, ONCE DAILY (QD)
     Dates: start: 2005
  5. METHOTREXATE [Concomitant]
     Dosage: UNK
  6. GLIPIZIDE [Concomitant]
     Indication: DIABETES MELLITUS
     Dosage: 5 MG, 2X/DAY (BID)
     Route: 048
     Dates: start: 201307
  7. LEVOXYL [Concomitant]
     Indication: HYPOTHYROIDISM
     Dosage: 100 NG, ONCE DAILY (QD)
     Route: 048
     Dates: start: 1975
  8. LEXAPRO [Concomitant]
     Indication: DEPRESSION
     Dosage: 10 MG, ONCE DAILY (QD)
     Route: 048
     Dates: start: 2008

REACTIONS (2)
  - Angina pectoris [Not Recovered/Not Resolved]
  - Cardiac stress test [Not Recovered/Not Resolved]
